FAERS Safety Report 10503821 (Version 1)
Quarter: 2014Q4

REPORT INFORMATION
  Report Type: Spontaneous
  Country: US (occurrence: None)
  Receive Date: 20141007
  Receipt Date: 20141007
  Transmission Date: 20150528
  Serious: Yes (Hospitalization)
  Sender: FDA-Public Use
  Company Number: None

PATIENT
  Age: 54 Year
  Sex: Male
  Weight: 106.8 kg

DRUGS (2)
  1. LIOTHYRONINE [Suspect]
     Active Substance: LIOTHYRONINE
     Indication: DEPRESSION
     Route: 048
     Dates: start: 20131008, end: 20140112
  2. LIOTHYRONINE [Suspect]
     Active Substance: LIOTHYRONINE
     Indication: FATIGUE
     Route: 048
     Dates: start: 20131008, end: 20140112

REACTIONS (4)
  - Tachypnoea [None]
  - Atrial flutter [None]
  - Hyperthyroidism [None]
  - Palpitations [None]

NARRATIVE: CASE EVENT DATE: 20140112
